FAERS Safety Report 17976923 (Version 2)
Quarter: 2021Q4

REPORT INFORMATION
  Report Type: Spontaneous
  Country: US (occurrence: None)
  Receive Date: 20200702
  Receipt Date: 20211214
  Transmission Date: 20220303
  Serious: Yes (Other)
  Sender: FDA-Public Use
  Company Number: 2020SE83344

PATIENT
  Age: 17938 Day
  Sex: Female

DRUGS (29)
  1. NEXIUM [Suspect]
     Active Substance: ESOMEPRAZOLE MAGNESIUM
     Indication: Gastrooesophageal reflux disease
     Route: 048
     Dates: start: 2004, end: 2017
  2. NEXIUM 24HR [Suspect]
     Active Substance: ESOMEPRAZOLE MAGNESIUM
     Route: 048
     Dates: start: 2004, end: 2017
  3. OMEPRAZOLE [Suspect]
     Active Substance: OMEPRAZOLE
     Indication: Gastrooesophageal reflux disease
     Dosage: GENERIC
     Route: 065
  4. PROTONIX [Suspect]
     Active Substance: PANTOPRAZOLE SODIUM
     Indication: Gastrooesophageal reflux disease
     Route: 065
     Dates: start: 2004, end: 2017
  5. NORVASC [Concomitant]
     Active Substance: AMLODIPINE BESYLATE
  6. ASPIRIN [Concomitant]
     Active Substance: ASPIRIN
  7. IRON [Concomitant]
     Active Substance: IRON
  8. FUROSEMIDE [Concomitant]
     Active Substance: FUROSEMIDE
  9. METOPROLOL [Concomitant]
     Active Substance: METOPROLOL
  10. RANITIDINE [Concomitant]
     Active Substance: RANITIDINE
  11. GLIPIZIDE [Concomitant]
     Active Substance: GLIPIZIDE
  12. LIPITOR [Concomitant]
     Active Substance: ATORVASTATIN CALCIUM
  13. CALCITRIOL [Concomitant]
     Active Substance: CALCITRIOL
  14. COLACE [Concomitant]
     Active Substance: DOCUSATE SODIUM
  15. LISINOPRIL [Concomitant]
     Active Substance: LISINOPRIL
  16. LANTUS [Concomitant]
     Active Substance: INSULIN GLARGINE
  17. EPOGEN [Concomitant]
     Active Substance: ERYTHROPOIETIN
  18. TACROLIMUS [Concomitant]
     Active Substance: TACROLIMUS
  19. CELLCEPT [Concomitant]
     Active Substance: MYCOPHENOLATE MOFETIL
  20. PREDNISONE [Concomitant]
     Active Substance: PREDNISONE
  21. PAXIL [Concomitant]
     Active Substance: PAROXETINE HYDROCHLORIDE
  22. AMITRIPTYLINE [Concomitant]
     Active Substance: AMITRIPTYLINE
  23. VITAMIN D [Concomitant]
     Active Substance: VITAMIN D NOS
  24. PRAVACHOL [Concomitant]
     Active Substance: PRAVASTATIN SODIUM
  25. ALBUTEROL [Concomitant]
     Active Substance: ALBUTEROL
  26. SYNHTROID [Concomitant]
  27. MAGNESIUM OXIDE [Concomitant]
     Active Substance: MAGNESIUM OXIDE
  28. VYTORIN [Concomitant]
     Active Substance: EZETIMIBE\SIMVASTATIN
  29. FLONASE [Concomitant]
     Active Substance: FLUTICASONE PROPIONATE

REACTIONS (3)
  - Acute kidney injury [Not Recovered/Not Resolved]
  - Chronic kidney disease [Not Recovered/Not Resolved]
  - Nephrogenic anaemia [Unknown]

NARRATIVE: CASE EVENT DATE: 20040802
